FAERS Safety Report 25065638 (Version 1)
Quarter: 2025Q1

REPORT INFORMATION
  Report Type: Report from Study
  Country: US (occurrence: US)
  Receive Date: 20250311
  Receipt Date: 20250311
  Transmission Date: 20250409
  Serious: Yes (Other)
  Sender: ABBVIE
  Company Number: US-ABBVIE-6165421

PATIENT
  Sex: Female

DRUGS (1)
  1. RINVOQ [Suspect]
     Active Substance: UPADACITINIB
     Indication: Ankylosing spondylitis
     Route: 048
     Dates: start: 2024

REACTIONS (6)
  - Tarsal tunnel syndrome [Unknown]
  - Procedural pain [Unknown]
  - Joint noise [Unknown]
  - Ligament rupture [Unknown]
  - Meniscus injury [Unknown]
  - Arthralgia [Recovering/Resolving]
